FAERS Safety Report 10203674 (Version 1)
Quarter: 2014Q2

REPORT INFORMATION
  Report Type: Spontaneous
  Country: US (occurrence: US)
  Receive Date: 20140529
  Receipt Date: 20140529
  Transmission Date: 20141212
  Serious: Yes (Hospitalization)
  Sender: FDA-Public Use
  Company Number: US-JNJFOC-20140510147

PATIENT
  Age: 76 Year
  Sex: Male
  Weight: 97.98 kg

DRUGS (5)
  1. LANTUS [Concomitant]
     Indication: DIABETES MELLITUS
     Route: 065
     Dates: start: 20140510
  2. LYRICA [Concomitant]
     Indication: NEUROPATHY PERIPHERAL
     Route: 065
  3. DIURETIC DRUG (NOS) [Concomitant]
     Indication: DIURETIC THERAPY
     Route: 065
  4. XGEVA [Concomitant]
     Indication: PROSTATE CANCER METASTATIC
     Route: 065
  5. ZYTIGA [Suspect]
     Indication: PROSTATE CANCER METASTATIC
     Route: 048
     Dates: start: 201402

REACTIONS (3)
  - Renal failure [Not Recovered/Not Resolved]
  - Diabetes mellitus inadequate control [Unknown]
  - Sinusitis [Recovered/Resolved]
